FAERS Safety Report 24546218 (Version 1)
Quarter: 2024Q4

REPORT INFORMATION
  Report Type: Spontaneous
  Country: US (occurrence: US)
  Receive Date: 20241024
  Receipt Date: 20241024
  Transmission Date: 20250114
  Serious: No
  Sender: DR REDDYS
  Company Number: US-DRL-USA-SPO/USA/24/0015026

PATIENT
  Age: 59 Year
  Sex: Female

DRUGS (1)
  1. TRIMETHOPRIM [Suspect]
     Active Substance: TRIMETHOPRIM
     Indication: Product used for unknown indication
     Route: 065

REACTIONS (1)
  - Drug hypersensitivity [Unknown]
